FAERS Safety Report 26110982 (Version 1)
Quarter: 2025Q4

REPORT INFORMATION
  Report Type: Spontaneous
  Country: US (occurrence: US)
  Receive Date: 20251202
  Receipt Date: 20251202
  Transmission Date: 20260118
  Serious: No
  Sender: SANDOZ
  Company Number: US-SANDOZ-SDZ2025US089399

PATIENT

DRUGS (1)
  1. ALBUTEROL SULFATE [Suspect]
     Active Substance: ALBUTEROL SULFATE
     Indication: Product used for unknown indication
     Dosage: UNITS AFFECTED: ONE, AEROSOL 90 MCG FOR ORAL INHALATION
     Route: 055

REACTIONS (3)
  - Drug dose omission by device [Unknown]
  - Device defective [Unknown]
  - Device delivery system issue [Unknown]
